FAERS Safety Report 25076407 (Version 1)
Quarter: 2025Q1

REPORT INFORMATION
  Report Type: Spontaneous
  Country: US (occurrence: US)
  Receive Date: 20250313
  Receipt Date: 20250313
  Transmission Date: 20250409
  Serious: No
  Sender: DERMAVANT SCIENCES
  Company Number: US-Dermavant-001991

PATIENT
  Age: 87 Year
  Sex: Female

DRUGS (1)
  1. VTAMA [Suspect]
     Active Substance: TAPINAROF
     Indication: Eczema
     Route: 061
     Dates: start: 20250216

REACTIONS (2)
  - Rosacea [Not Recovered/Not Resolved]
  - Pruritus [Not Recovered/Not Resolved]
